FAERS Safety Report 4524754-9 (Version None)
Quarter: 2004Q4

REPORT INFORMATION
  Report Type: 
  Country: None (occurrence: None)
  Receive Date: 20041209
  Receipt Date: 20041126
  Transmission Date: 20050328
  Serious: Yes (Hospitalization)
  Sender: FDA-Public Use
  Company Number: 240636

PATIENT
  Age: 79 Year
  Sex: Male
  Weight: 70.2 kg

DRUGS (6)
  1. LANTUS [Suspect]
     Indication: DIABETES MELLITUS NON-INSULIN-DEPENDENT
     Dosage: 24 IU, QD, SUBCUTANEOUS
     Route: 058
     Dates: start: 20041101
  2. NOVORAPID FLEXPEN (INSULIN ASPART) SOLUTION FOR INJECTION, 100U/ML [Suspect]
     Indication: DIABETES MELLITUS NON-INSULIN-DEPENDENT
     Dosage: 36 IU, QD, SUBCUTANEOUS
     Route: 058
     Dates: start: 20041101
  3. ASPIRIN [Concomitant]
  4. SIMVASTATIN [Concomitant]
  5. ZESTRIL [Concomitant]
  6. STESOLID (DIAZEPAM) [Concomitant]

REACTIONS (2)
  - LOSS OF CONSCIOUSNESS [None]
  - OVERDOSE [None]
